FAERS Safety Report 7544823-9 (Version None)
Quarter: 2011Q2

REPORT INFORMATION
  Report Type: 
  Country: None (occurrence: None)
  Receive Date: 20110614
  Receipt Date: 20110204
  Transmission Date: 20111010
  Serious: Yes (Hospitalization)
  Sender: FDA-Public Use
  Company Number: US-BAYER-201032413NA

PATIENT
  Age: 33 Year
  Sex: Female
  Weight: 90.703 kg

DRUGS (5)
  1. ALPRAZOLAM [Concomitant]
     Dosage: 0.5 MG, UNK
     Dates: start: 20041201
  2. METHOCARBAMOL [Concomitant]
     Dosage: 750 MG, UNK
     Dates: start: 20041201
  3. YASMIN [Suspect]
     Indication: PRODUCT USED FOR UNKNOWN INDICATION
     Dosage: UNK
     Route: 048
     Dates: start: 20040528, end: 20050207
  4. FOLIC ACID [Concomitant]
  5. TRAZODONE HCL [Concomitant]
     Dosage: 100 MG, UNK
     Dates: start: 20041201

REACTIONS (2)
  - DEEP VEIN THROMBOSIS [None]
  - PAIN [None]
